FAERS Safety Report 7834045-6 (Version None)
Quarter: 2011Q4

REPORT INFORMATION
  Report Type: 
  Country: None (occurrence: None)
  Receive Date: 20111024
  Receipt Date: 20111024
  Transmission Date: 20120403
  Serious: No
  Sender: FDA-Public Use
  Company Number: None

PATIENT
  Sex: Male
  Weight: 95.254 kg

DRUGS (2)
  1. PROPRANOLOL [Suspect]
     Indication: HYPERTENSION
     Dosage: 10 MG
     Route: 048
     Dates: start: 19900101, end: 20110915
  2. CYMBALTA [Concomitant]
     Indication: DEPRESSION
     Dosage: 5 MG
     Route: 048
     Dates: start: 20110401, end: 20110915

REACTIONS (2)
  - VISUAL IMPAIRMENT [None]
  - HALLUCINATION [None]
